FAERS Safety Report 17632236 (Version 1)
Quarter: 2020Q2

REPORT INFORMATION
  Report Type: Spontaneous
  Country: US (occurrence: US)
  Receive Date: 20200403
  Receipt Date: 20200403
  Transmission Date: 20200713
  Serious: No
  Sender: FDA-Public Use
  Company Number: None

PATIENT
  Age: 71 Year
  Sex: Female
  Weight: 48.08 kg

DRUGS (14)
  1. POTASSIUM [Concomitant]
     Active Substance: POTASSIUM
  2. CURCUMIN [Concomitant]
     Active Substance: CURCUMIN
  3. FEXOFENADINE [Concomitant]
     Active Substance: FEXOFENADINE HYDROCHLORIDE
  4. FASLODEX [Suspect]
     Active Substance: FULVESTRANT
     Indication: BREAST CANCER
     Dates: start: 20200107, end: 20200107
  5. CALCIUM CITRATE [Concomitant]
     Active Substance: CALCIUM CITRATE
  6. FISH OIL [Concomitant]
     Active Substance: FISH OIL
  7. WOMEN^S MULTI VITAMIN [Concomitant]
  8. MAGNESIUM GLYCINATE [Concomitant]
     Active Substance: MAGNESIUM GLYCINATE
  9. R-LIPOIC ACID [Concomitant]
  10. NORCO [Concomitant]
     Active Substance: ACETAMINOPHEN\HYDROCODONE BITARTRATE
  11. ALBUTEROL. [Concomitant]
     Active Substance: ALBUTEROL
  12. PROBIOTICS [Concomitant]
     Active Substance: PROBIOTICS NOS
  13. ZANTAC [Concomitant]
     Active Substance: RANITIDINE HYDROCHLORIDE
  14. BENADRYL [Concomitant]
     Active Substance: DIPHENHYDRAMINE HYDROCHLORIDE

REACTIONS (2)
  - Middle insomnia [None]
  - Arthralgia [None]

NARRATIVE: CASE EVENT DATE: 20200107
